FAERS Safety Report 17256220 (Version 1)
Quarter: 2019Q4

REPORT INFORMATION
  Report Type: Spontaneous
  Country: US (occurrence: US)
  Receive Date: 20191217
  Receipt Date: 20191217
  Transmission Date: 20200122
  Serious: No
  Sender: FDA-Public Use
  Company Number: None

PATIENT
  Sex: Female

DRUGS (1)
  1. DAPTOMYCIN. [Suspect]
     Active Substance: DAPTOMYCIN
     Indication: OSTEOMYELITIS
     Dosage: ?          OTHER FREQUENCY:24 HOURS ;?
     Route: 042
     Dates: start: 20191026

REACTIONS (2)
  - Pain [None]
  - Blood creatine phosphokinase increased [None]
